FAERS Safety Report 26058812 (Version 1)
Quarter: 2025Q4

REPORT INFORMATION
  Report Type: Spontaneous
  Country: GB (occurrence: GB)
  Receive Date: 20251118
  Receipt Date: 20251118
  Transmission Date: 20260118
  Serious: Yes (Other)
  Sender: BAYER HEALTHCARE PHARMACEUTICALS INC.
  Company Number: None

PATIENT
  Age: 38 Year
  Sex: Female
  Weight: 59 kg

DRUGS (6)
  1. CIPROFLOXACIN [Suspect]
     Active Substance: CIPROFLOXACIN
     Indication: Pseudomonas infection
     Dosage: UNK
     Route: 048
     Dates: start: 20241112
  2. AMITRIPTYLINE HYDROCHLORIDE [Concomitant]
     Active Substance: AMITRIPTYLINE HYDROCHLORIDE
     Indication: Ill-defined disorder
     Dosage: TAKE ONE AT NIGHT, INCREASE BY AN ADDITIONAL TABLET EVERY 3 NIGHTS, UP TO A MAXIMUM OF 4 AT NIGHT.
     Route: 048
     Dates: start: 20251014, end: 20251111
  3. NITROFURANTOIN [Concomitant]
     Active Substance: NITROFURANTOIN
     Indication: Ill-defined disorder
     Dosage: 100 MG, BID
     Route: 048
     Dates: start: 20251028, end: 20251031
  4. AMDINOCILLIN PIVOXIL [Concomitant]
     Active Substance: AMDINOCILLIN PIVOXIL
     Indication: Ill-defined disorder
     Dosage: TAKE TWO IMMEDIATELY
     Route: 048
     Dates: start: 20251103, end: 20251110
  5. FLUCLOXACILLIN [Concomitant]
     Active Substance: FLUCLOXACILLIN
     Indication: Ill-defined disorder
     Dosage: DAILY DOSE = 2G
     Route: 048
     Dates: start: 20251111
  6. LEVOTHYROXINE [Concomitant]
     Active Substance: LEVOTHYROXINE
     Indication: Ill-defined disorder
     Dosage: 1 DF, QD
     Route: 048
     Dates: start: 20241113

REACTIONS (3)
  - Complex regional pain syndrome [Not Recovered/Not Resolved]
  - Paraesthesia [None]
  - Burning sensation [None]

NARRATIVE: CASE EVENT DATE: 20241117
